FAERS Safety Report 25135790 (Version 2)
Quarter: 2025Q1

REPORT INFORMATION
  Report Type: Spontaneous
  Country: US (occurrence: US)
  Receive Date: 20250328
  Receipt Date: 20250328
  Transmission Date: 20250409
  Serious: Yes (Other)
  Sender: GILEAD
  Company Number: US-GILEAD-2025-0708267

PATIENT
  Age: 29 Year
  Sex: Male

DRUGS (1)
  1. DESCOVY [Suspect]
     Active Substance: EMTRICITABINE\TENOFOVIR ALAFENAMIDE FUMARATE
     Indication: Prophylaxis against HIV infection
     Route: 065
     Dates: start: 20250304, end: 20250314

REACTIONS (20)
  - Neuropathy peripheral [Recovered/Resolved]
  - Weight increased [Not Recovered/Not Resolved]
  - Fatigue [Recovered/Resolved]
  - Periorbital swelling [Recovered/Resolved]
  - Arthralgia [Recovered/Resolved]
  - Joint lock [Recovered/Resolved]
  - Hypersomnia [Recovered/Resolved]
  - Emotional disorder [Recovered/Resolved]
  - Dysphemia [Recovered/Resolved]
  - Peripheral swelling [Recovered/Resolved]
  - Dizziness [Recovered/Resolved]
  - Dyspnoea [Recovered/Resolved]
  - Paraesthesia [Recovered/Resolved]
  - Grip strength decreased [Recovered/Resolved]
  - Blepharospasm [Recovered/Resolved]
  - Muscular weakness [Recovered/Resolved]
  - Chest pain [Recovered/Resolved]
  - Drooling [Recovered/Resolved]
  - Muscle twitching [Recovered/Resolved]
  - Blood lactic acid increased [Recovered/Resolved]
